FAERS Safety Report 11806760 (Version 1)
Quarter: 2015Q4

REPORT INFORMATION
  Report Type: Report from Study
  Country: CN (occurrence: CN)
  Receive Date: 20151207
  Receipt Date: 20151207
  Transmission Date: 20160305
  Serious: Yes (Hospitalization)
  Sender: FDA-Public Use
  Company Number: CN-UCBSA-2015033277

PATIENT
  Age: 60 Year
  Sex: Female
  Weight: 62 kg

DRUGS (4)
  1. MTX [Concomitant]
     Active Substance: METHOTREXATE SODIUM
     Indication: RHEUMATOID ARTHRITIS
     Dosage: 10 MG, WEEKLY (QW)
     Route: 048
     Dates: start: 2013
  2. CERTOLIZUMAB PEGOL [Suspect]
     Active Substance: CERTOLIZUMAB PEGOL
     Indication: RHEUMATOID ARTHRITIS
     Dosage: 400 MG, EV 2 WEEKS(QOW)
     Route: 058
     Dates: start: 20150908, end: 20151008
  3. LOXOPROFEN [Concomitant]
     Active Substance: LOXOPROFEN
     Indication: RHEUMATOID ARTHRITIS
     Dosage: 60 MG, 2X/DAY (BID)
     Route: 048
     Dates: start: 201410
  4. FOLIC ACID. [Concomitant]
     Active Substance: FOLIC ACID
     Indication: RHEUMATOID ARTHRITIS
     Dosage: 10 MG, WEEKLY (QW)
     Route: 048
     Dates: start: 2013

REACTIONS (1)
  - Appendiceal abscess [Recovered/Resolved]

NARRATIVE: CASE EVENT DATE: 20151017
